FAERS Safety Report 16225436 (Version 3)
Quarter: 2022Q1

REPORT INFORMATION
  Report Type: Spontaneous
  Country: US (occurrence: US)
  Receive Date: 20190422
  Receipt Date: 20220322
  Transmission Date: 20220423
  Serious: Yes (Hospitalization, Other)
  Sender: FDA-Public Use
  Company Number: US-TAKEDA-2019TUS023390

PATIENT
  Age: 54 Year
  Sex: Male

DRUGS (7)
  1. NINLARO [Suspect]
     Active Substance: IXAZOMIB CITRATE
     Indication: Plasma cell myeloma
     Dosage: 4 MILLIGRAM, QD
     Route: 048
     Dates: start: 20180720
  2. NINLARO [Suspect]
     Active Substance: IXAZOMIB CITRATE
     Indication: Carcinoid tumour
  3. CLARITIN                           /00413701/ [Concomitant]
     Dosage: 10 MILLIGRAM
     Route: 065
  4. PREVACID [Concomitant]
     Active Substance: LANSOPRAZOLE
     Dosage: 30 MILLIGRAM
     Route: 065
  5. ACYCLOVIR                          /00587301/ [Concomitant]
     Dosage: 400 MILLIGRAM
     Route: 065
  6. VITAMIN D                          /00107901/ [Concomitant]
     Dosage: 50000 INTERNATIONAL UNIT
     Route: 065
  7. CYMBALTA [Concomitant]
     Active Substance: DULOXETINE HYDROCHLORIDE
     Dosage: 20 MILLIGRAM
     Route: 065

REACTIONS (4)
  - Pneumonia [Unknown]
  - Diarrhoea [Unknown]
  - Vomiting [Unknown]
  - Off label use [Unknown]

NARRATIVE: CASE EVENT DATE: 20180720
